FAERS Safety Report 7331173-9 (Version None)
Quarter: 2011Q1

REPORT INFORMATION
  Report Type: 
  Country: None (occurrence: None)
  Receive Date: 20110228
  Receipt Date: 20110228
  Transmission Date: 20110831
  Serious: Yes (Life-Threatening, Hospitalization)
  Sender: FDA-Public Use
  Company Number: None

PATIENT
  Sex: Female
  Weight: 56.6996 kg

DRUGS (1)
  1. ENBREL [Suspect]
     Indication: PSORIASIS
     Dosage: 50 MG 1XWEEK SUBDERMAL
     Route: 059
     Dates: start: 20020610, end: 20101220

REACTIONS (7)
  - MOVEMENT DISORDER [None]
  - GOUT [None]
  - ERYTHEMA [None]
  - ATRIAL FIBRILLATION [None]
  - TOXIC SHOCK SYNDROME [None]
  - IMMUNOSUPPRESSION [None]
  - MULTI-ORGAN FAILURE [None]
